FAERS Safety Report 25586325 (Version 1)
Quarter: 2025Q3

REPORT INFORMATION
  Report Type: Spontaneous
  Country: US (occurrence: US)
  Receive Date: 20250721
  Receipt Date: 20250721
  Transmission Date: 20251020
  Serious: Yes (Other)
  Sender: PROACTIV
  Company Number: US-The Proactiv LLC-2180880

PATIENT
  Age: 45 Year
  Sex: Female

DRUGS (4)
  1. PROACTIV PLUS PORE TARGETING TREATMENT [Suspect]
     Active Substance: BENZOYL PEROXIDE
  2. PROACTIV PLUS SMOOTHING BHA [Suspect]
     Active Substance: SALICYLIC ACID
  3. COSMETICS [Suspect]
     Active Substance: COSMETICS
  4. PROACTIV PLUS COMPLEXION PERFECTING HYDRATOR [Suspect]
     Active Substance: SALICYLIC ACID

REACTIONS (1)
  - Endometriosis [Not Recovered/Not Resolved]
